FAERS Safety Report 12247700 (Version 1)
Quarter: 2016Q2

REPORT INFORMATION
  Report Type: Spontaneous
  Country: US (occurrence: US)
  Receive Date: 20160408
  Receipt Date: 20160408
  Transmission Date: 20160815
  Serious: No
  Sender: FDA-Public Use
  Company Number: US-HOSPIRA-3091517

PATIENT
  Age: 29 Year
  Sex: Female
  Weight: 56.82 kg

DRUGS (1)
  1. PROPOFOL. [Suspect]
     Active Substance: PROPOFOL
     Indication: SURGERY
     Dosage: 200 MG/ML
     Route: 042
     Dates: start: 20151112

REACTIONS (1)
  - Drug ineffective [Recovered/Resolved]

NARRATIVE: CASE EVENT DATE: 20151112
